FAERS Safety Report 9963329 (Version 1)
Quarter: 2014Q1

REPORT INFORMATION
  Report Type: Report from Study
  Country: US (occurrence: US)
  Receive Date: 20140305
  Receipt Date: 20140305
  Transmission Date: 20141002
  Serious: No
  Sender: FDA-Public Use
  Company Number: US-ABBVIE-13P-163-1117707-00

PATIENT
  Age: 73 Year
  Sex: Female
  Weight: 67.65 kg

DRUGS (3)
  1. HUMIRA [Suspect]
     Indication: COLITIS ULCERATIVE
     Route: 058
     Dates: start: 20130415, end: 20130415
  2. HUMIRA [Suspect]
     Route: 058
     Dates: start: 20130429, end: 201307
  3. HUMIRA [Suspect]
     Route: 058
     Dates: start: 201307

REACTIONS (1)
  - Incorrect dose administered [Recovered/Resolved]
